FAERS Safety Report 25024450 (Version 1)
Quarter: 2025Q1

REPORT INFORMATION
  Report Type: Spontaneous
  Country: US (occurrence: None)
  Receive Date: 20250228
  Receipt Date: 20250228
  Transmission Date: 20250409
  Serious: No
  Sender: FDA-CTU
  Company Number: None

PATIENT
  Age: 69 Year
  Sex: Male
  Weight: 112 kg

DRUGS (2)
  1. GLIMEPIRIDE [Suspect]
     Active Substance: GLIMEPIRIDE
     Indication: Diabetes mellitus
     Dates: end: 20230530
  2. DIVALPROEX SODIUM [Suspect]
     Active Substance: DIVALPROEX SODIUM
     Indication: Bipolar I disorder
     Dates: end: 20230530

REACTIONS (1)
  - Angioedema [None]

NARRATIVE: CASE EVENT DATE: 20230526
